FAERS Safety Report 4892029-4 (Version None)
Quarter: 2006Q1

REPORT INFORMATION
  Report Type: 
  Country: None (occurrence: None)
  Receive Date: 20060126
  Receipt Date: 20051214
  Transmission Date: 20060701
  Serious: Yes (Other)
  Sender: FDA-Public Use
  Company Number: PHBS2005JP18647

PATIENT
  Age: 56 Year
  Sex: Female
  Weight: 38 kg

DRUGS (5)
  1. AREDIA [Suspect]
     Indication: METASTASES TO BONE
     Dosage: 90 MG
     Route: 042
     Dates: start: 20051026
  2. FARMORUBICIN [Suspect]
     Dosage: 110 MG/D
     Route: 042
     Dates: start: 20051031
  3. ENDOXAN [Suspect]
     Dosage: 750 MG/D
     Route: 042
     Dates: start: 20051031
  4. LOXONIN [Concomitant]
     Dosage: 180 MG/D
     Route: 048
     Dates: start: 20051021
  5. MUCOSTA [Concomitant]
     Dosage: 300 MG/D
     Route: 048
     Dates: start: 20051021

REACTIONS (2)
  - NEUTROPENIA [None]
  - NEUTROPHIL COUNT ABNORMAL [None]
